FAERS Safety Report 21147553 (Version 2)
Quarter: 2022Q3

REPORT INFORMATION
  Report Type: Other
  Country: DE (occurrence: DE)
  Receive Date: 20220729
  Receipt Date: 20220808
  Transmission Date: 20221027
  Serious: Yes (Life-Threatening, Hospitalization, Other)
  Sender: FDA-Public Use
  Company Number: None

PATIENT
  Age: 70 Year
  Sex: Female

DRUGS (7)
  1. MIRABEGRON [Suspect]
     Active Substance: MIRABEGRON
     Indication: Urinary tract infection
     Route: 048
     Dates: start: 20220601, end: 20220615
  2. COSOPT [Concomitant]
     Active Substance: DORZOLAMIDE HYDROCHLORIDE\TIMOLOL MALEATE
     Indication: Product used for unknown indication
     Dosage: UNK UNK, UNKNOWN FREQ. [LONG-TERM THERAPY]
     Route: 065
  3. BISOPROLOL [Concomitant]
     Active Substance: BISOPROLOL
     Indication: Product used for unknown indication
     Dosage: 2.5 MG, EVERY 12 HOURS [1-0-1 LONG-TERM THERAPY]
     Route: 065
  4. ELIQUIS [Concomitant]
     Active Substance: APIXABAN
     Indication: Anticoagulant therapy
     Dosage: UNK UNK, UNKNOWN FREQ.[LONG-TERM THERAPY]
     Route: 065
  5. LATANOPROST [Concomitant]
     Active Substance: LATANOPROST
     Indication: Product used for unknown indication
     Dosage: UNK UNK, UNKNOWN FREQ. [LONG-TERM THERAPY]
     Route: 065
  6. AMITRIPTYLINE [Concomitant]
     Active Substance: AMITRIPTYLINE
     Indication: Product used for unknown indication
     Route: 065
  7. LEVOTHYROXINE SODIUM [Concomitant]
     Active Substance: LEVOTHYROXINE SODIUM
     Indication: Product used for unknown indication
     Dosage: UNK UNK, UNKNOWN FREQ. [LONG-TERM THERAPY]
     Route: 065

REACTIONS (4)
  - Cardiac failure chronic [Recovering/Resolving]
  - Atrial fibrillation [Recovering/Resolving]
  - Dyspnoea exertional [Recovering/Resolving]
  - Off label use [Unknown]

NARRATIVE: CASE EVENT DATE: 20220601
